FAERS Safety Report 5138620-1 (Version None)
Quarter: 2006Q4

REPORT INFORMATION
  Report Type: 
  Country: None (occurrence: None)
  Receive Date: 20061030
  Receipt Date: 20061004
  Transmission Date: 20070319
  Serious: Yes (Other)
  Sender: FDA-Public Use
  Company Number: JP-JPN-A200604041

PATIENT
  Age: 85 Year
  Sex: Female

DRUGS (3)
  1. PAXIL [Suspect]
     Indication: DRUG USE FOR UNKNOWN INDICATION
     Route: 048
     Dates: start: 20060920
  2. DEPAS [Concomitant]
     Route: 048
  3. MENDON [Concomitant]
     Route: 048

REACTIONS (3)
  - DEPRESSIVE SYMPTOM [None]
  - IRRITABILITY [None]
  - MANIA [None]
